FAERS Safety Report 8477597-8 (Version None)
Quarter: 2012Q2

REPORT INFORMATION
  Report Type: 
  Country: None (occurrence: None)
  Receive Date: 20120626
  Receipt Date: 20120626
  Transmission Date: 20120825
  Serious: Yes (Other)
  Sender: FDA-Public Use
  Company Number: None

PATIENT
  Age: 43 Year
  Sex: Female
  Weight: 99.7913 kg

DRUGS (1)
  1. ZIPRASIDONE HCL [Suspect]
     Indication: BIPOLAR I DISORDER
     Dosage: 160 MG, QHS, PO
     Route: 048
     Dates: start: 20120614, end: 20120622

REACTIONS (4)
  - PRODUCT SUBSTITUTION ISSUE [None]
  - AMNESIA [None]
  - LOSS OF CONSCIOUSNESS [None]
  - RASH [None]
